FAERS Safety Report 25011457 (Version 6)
Quarter: 2025Q2

REPORT INFORMATION
  Report Type: Spontaneous
  Country: US (occurrence: US)
  Receive Date: 20250226
  Receipt Date: 20250410
  Transmission Date: 20250717
  Serious: Yes (Hospitalization)
  Sender: ROCHE
  Company Number: US-ROCHE-10000217603

PATIENT
  Sex: Female

DRUGS (10)
  1. XOLAIR PFS [Suspect]
     Active Substance: OMALIZUMAB
     Indication: Urticaria
     Dosage: ONGOING, STRENGTH: 300 MG/2 ML
     Route: 058
     Dates: start: 202502
  2. XOLAIR PFS [Suspect]
     Active Substance: OMALIZUMAB
     Indication: Anaphylactic reaction
  3. TRAZODONE HCL [Concomitant]
     Active Substance: TRAZODONE HYDROCHLORIDE
     Dosage: 50 MG TABLET AS DIRECTED ORALLY ONCE A DAY
     Route: 048
  4. FLONASE ALLERGY RELIEF [Concomitant]
     Active Substance: FLUTICASONE PROPIONATE
     Dosage: RELIEF 50 MCG/ACT SUSPENSION 1 SPRAY(S) INTRANASALLY ONCE A DAY
     Route: 045
  5. CYCLOBENZAPRINE HYDROCHLORIDE [Concomitant]
     Active Substance: CYCLOBENZAPRINE HYDROCHLORIDE
     Dosage: 10 MG TABLET 1 TAB(S) ORALLY 3 TIMES A DAY
  6. REGLAN [Concomitant]
     Active Substance: METOCLOPRAMIDE HYDROCHLORIDE
     Dosage: 10 MG TABLET 1 TAB(S) ORALLY QDAY, PRN
     Route: 048
  7. PROCHLORPERAZINE MALEATE [Concomitant]
     Active Substance: PROCHLORPERAZINE MALEATE
     Dosage: 10 MG TABLET 1 TAB(S) ORALLY EVERY 6 HOURS
     Route: 048
  8. FAMOTIDINE [Concomitant]
     Active Substance: FAMOTIDINE
     Dosage: 40 MG TABLET 1 TAB(S) ORALLY 2 TIMES A DAY
     Route: 048
  9. PREDNISONE [Concomitant]
     Active Substance: PREDNISONE
     Dosage: 20 MG TABLET 1 TAB(S) ORALLY ONCE A DAY,
     Route: 048
  10. ZYRTEC [Concomitant]
     Active Substance: CETIRIZINE HYDROCHLORIDE
     Dosage: ZYRTEC 10 MG TABLET 1 TAB(S) ORALLY TWICE A DAY
     Route: 048

REACTIONS (3)
  - Anaphylactic reaction [Unknown]
  - Urticaria chronic [Unknown]
  - Angioedema [Unknown]

NARRATIVE: CASE EVENT DATE: 20250217
